FAERS Safety Report 8343194-8 (Version None)
Quarter: 2012Q2

REPORT INFORMATION
  Report Type: 
  Country: None (occurrence: None)
  Receive Date: 20120508
  Receipt Date: 20120507
  Transmission Date: 20120825
  Serious: Yes (Other)
  Sender: FDA-Public Use
  Company Number: JP-PFIZER INC-2012111237

PATIENT
  Age: 70 Year
  Sex: Female

DRUGS (1)
  1. ZOLOFT [Suspect]
     Dosage: 25 MG/DAY
     Route: 048
     Dates: start: 20120101

REACTIONS (1)
  - PARKINSON'S DISEASE [None]
